FAERS Safety Report 10524523 (Version 3)
Quarter: 2014Q4

REPORT INFORMATION
  Report Type: Spontaneous
  Country: US (occurrence: US)
  Receive Date: 20141017
  Receipt Date: 20141205
  Transmission Date: 20150528
  Serious: No
  Sender: FDA-Public Use
  Company Number: US-009507513-1410USA007936

PATIENT
  Sex: Female
  Weight: 67.57 kg

DRUGS (1)
  1. NEXPLANON [Suspect]
     Active Substance: ETONOGESTREL
     Indication: CONTRACEPTION
     Dosage: 68 MG, UNK
     Route: 059
     Dates: start: 20140602, end: 20141014

REACTIONS (4)
  - Pain in extremity [Unknown]
  - Implant site pain [Unknown]
  - Implant site erythema [Unknown]
  - Implant site swelling [Unknown]

NARRATIVE: CASE EVENT DATE: 201406
